FAERS Safety Report 9341981 (Version 1)
Quarter: 2013Q2

REPORT INFORMATION
  Report Type: Spontaneous
  Country: KR (occurrence: KR)
  Receive Date: 20130611
  Receipt Date: 20130611
  Transmission Date: 20140414
  Serious: Yes (Other)
  Sender: FDA-Public Use
  Company Number: KR-ASTRAZENECA-2013SE38788

PATIENT
  Age: 62 Year
  Sex: Female

DRUGS (2)
  1. LIDOCAINE [Suspect]
     Indication: CARPAL TUNNEL DECOMPRESSION
     Route: 053
  2. EPINEPHRINE [Suspect]
     Indication: CARPAL TUNNEL DECOMPRESSION
     Route: 053

REACTIONS (1)
  - Peripheral nerve injury [Unknown]
